FAERS Safety Report 5815460-9 (Version None)
Quarter: 2008Q3

REPORT INFORMATION
  Report Type: 
  Country: None (occurrence: None)
  Receive Date: 20080715
  Receipt Date: 20080702
  Transmission Date: 20090109
  Serious: Yes (Death, Other)
  Sender: FDA-Public Use
  Company Number: 2008S1000214

PATIENT
  Age: 22 Year
  Sex: Female

DRUGS (8)
  1. CUBICIN [Suspect]
     Indication: ENTEROCOCCAL INFECTION
     Dosage: 350 MG; Q48H; IV
     Route: 042
     Dates: start: 20080609, end: 20080618
  2. CUBICIN [Suspect]
     Indication: ENTEROCOCCAL SEPSIS
     Dosage: 350 MG; Q48H; IV
     Route: 042
     Dates: start: 20080609, end: 20080618
  3. MEROPENEM (MEROPENEM) [Suspect]
     Indication: NEUTROPENIC SEPSIS
     Dosage: 1 GM; BID; IV
     Route: 042
     Dates: start: 20080529, end: 20080618
  4. CASPOFUNGIN [Concomitant]
  5. TRANEXAMIC ACID [Concomitant]
  6. CYCLOSPORINE [Concomitant]
  7. THIOPENTAL SODIUM [Concomitant]
  8. LEVETIRACETAM [Concomitant]

REACTIONS (6)
  - BRAIN OEDEMA [None]
  - CONVULSION [None]
  - ENTEROCOCCAL INFECTION [None]
  - FUNGAL INFECTION [None]
  - GENERAL PHYSICAL HEALTH DETERIORATION [None]
  - HAEMORRHAGE INTRACRANIAL [None]
